FAERS Safety Report 12365273 (Version 2)
Quarter: 2016Q2

REPORT INFORMATION
  Report Type: Spontaneous
  Country: US (occurrence: US)
  Receive Date: 20160513
  Receipt Date: 20160526
  Transmission Date: 20160815
  Serious: Yes (Other)
  Sender: FDA-Public Use
  Company Number: US-AMGEN-USASP2016059124

PATIENT
  Sex: Male

DRUGS (2)
  1. ARANESP [Suspect]
     Active Substance: DARBEPOETIN ALFA
     Indication: PRODUCT USED FOR UNKNOWN INDICATION
     Dosage: UNK
     Route: 065
  2. NPLATE [Suspect]
     Active Substance: ROMIPLOSTIM
     Indication: PLATELET DISORDER
     Dosage: UNK
     Route: 065
     Dates: start: 20160504

REACTIONS (5)
  - Epistaxis [Unknown]
  - Haemoglobin abnormal [Unknown]
  - Dyspnoea [Unknown]
  - Haemoptysis [Unknown]
  - Dialysis [Unknown]

NARRATIVE: CASE EVENT DATE: 20160505
